FAERS Safety Report 15978472 (Version 1)
Quarter: 2019Q1

REPORT INFORMATION
  Report Type: Spontaneous
  Country: CN (occurrence: CN)
  Receive Date: 20190219
  Receipt Date: 20190219
  Transmission Date: 20190418
  Serious: Yes (Other)
  Sender: FDA-Public Use
  Company Number: CN-ROCHE-2268051

PATIENT
  Sex: Female

DRUGS (3)
  1. TOREMIFENE [Concomitant]
     Active Substance: TOREMIFENE
     Route: 065
     Dates: start: 201711, end: 2018
  2. TAMOXIFEN [Concomitant]
     Active Substance: TAMOXIFEN
     Route: 065
     Dates: start: 201612, end: 201711
  3. HERCEPTIN [Suspect]
     Active Substance: TRASTUZUMAB
     Indication: HER-2 POSITIVE BREAST CANCER
     Dosage: 17 TIMES IN TOTAL.
     Route: 065
     Dates: start: 201612, end: 201711

REACTIONS (1)
  - Uterine haemorrhage [Unknown]

NARRATIVE: CASE EVENT DATE: 201711
